FAERS Safety Report 24031706 (Version 2)
Quarter: 2024Q3

REPORT INFORMATION
  Report Type: Spontaneous
  Country: US (occurrence: US)
  Receive Date: 20240629
  Receipt Date: 20240712
  Transmission Date: 20241017
  Serious: Yes (Hospitalization, Other)
  Sender: AUROBINDO
  Company Number: US-MLMSERVICE-20240613-PI097179-00271-1

PATIENT
  Age: 61 Year
  Sex: Male

DRUGS (6)
  1. DEXAMETHASONE [Suspect]
     Active Substance: DEXAMETHASONE
     Indication: Rheumatoid arthritis
     Dosage: UNK
     Route: 048
  2. PREDNISONE [Suspect]
     Active Substance: PREDNISONE
     Indication: Rheumatoid arthritis
     Dosage: UNK
     Route: 048
  3. PREDNISONE [Suspect]
     Active Substance: PREDNISONE
     Dosage: 60 MILLIGRAM, ONCE A DAY
     Route: 048
  4. TRIAMCINOLONE [Suspect]
     Active Substance: TRIAMCINOLONE
     Indication: Rheumatoid arthritis
     Dosage: UNK UNK, ONCE A DAY,  IV TRIAMCINOLONE EQUIVALENT TO ROUGHLY 59 MG OF PREDNISONE ORAL DAILY FOR 36 D
     Route: 042
  5. RITUXIMAB [Suspect]
     Active Substance: RITUXIMAB
     Indication: Rheumatoid arthritis
     Dosage: 1 GRAM, TWO DAYS PRIOR TO ADMISSION
     Route: 065
  6. RITUXIMAB [Suspect]
     Active Substance: RITUXIMAB
     Dosage: UNK, ADDITIONAL RITUXIMAB INFUSION
     Route: 065

REACTIONS (2)
  - Acute respiratory failure [Recovering/Resolving]
  - Pneumocystis jirovecii pneumonia [Recovering/Resolving]
